FAERS Safety Report 6326059-2 (Version None)
Quarter: 2009Q3

REPORT INFORMATION
  Report Type: 
  Country: None (occurrence: None)
  Receive Date: 20090824
  Receipt Date: 20090810
  Transmission Date: 20100115
  Serious: Yes (Hospitalization)
  Sender: FDA-Public Use
  Company Number: FR-MYLANLABS-2009S1014151

PATIENT
  Age: 56 Year
  Sex: Male

DRUGS (10)
  1. METHOTREXATE MERCK [Suspect]
     Dates: start: 20090613
  2. METHOTREXATE MERCK [Suspect]
     Dates: start: 20090702
  3. ETOPOSIDE MERCK [Suspect]
     Dates: start: 20090614
  4. ETOPOSIDE MERCK [Suspect]
  5. RITUXIMAB [Suspect]
     Indication: LYMPHOMA
     Dates: start: 20090613
  6. CARMUSTINE [Suspect]
     Dates: start: 20090614
  7. DEROXAT [Concomitant]
  8. ATARAX [Concomitant]
  9. CONTRAMAL [Concomitant]
  10. DEROXAT [Concomitant]

REACTIONS (1)
  - DIABETES INSIPIDUS [None]
